FAERS Safety Report 6999290-0 (Version None)
Quarter: 2010Q3

REPORT INFORMATION
  Report Type: 
  Country: None (occurrence: None)
  Receive Date: 20100920
  Receipt Date: 20091005
  Transmission Date: 20110219
  Serious: No
  Sender: FDA-Public Use
  Company Number: US-ASTRAZENECA-2009SE15146

PATIENT
  Sex: Male
  Weight: 90.7 kg

DRUGS (2)
  1. SEROQUEL [Suspect]
     Route: 048
     Dates: start: 20050101, end: 20070101
  2. XANEX [Concomitant]

REACTIONS (4)
  - CHILLS [None]
  - MUSCLE TWITCHING [None]
  - TOOTH EROSION [None]
  - TRISMUS [None]
